FAERS Safety Report 21816797 (Version 1)
Quarter: 2023Q1

REPORT INFORMATION
  Report Type: Spontaneous
  Country: US (occurrence: None)
  Receive Date: 20230103
  Receipt Date: 20230103
  Transmission Date: 20230418
  Serious: No
  Sender: FDA-Public Use
  Company Number: None

PATIENT
  Age: 57 Year
  Sex: Female
  Weight: 82.35 kg

DRUGS (3)
  1. HYDROXYAMPHETAMINE HYDROBROMIDE\TROPICAMIDE [Suspect]
     Active Substance: HYDROXYAMPHETAMINE HYDROBROMIDE\TROPICAMIDE
     Indication: Mydriasis
     Dates: start: 20230103, end: 20230103
  2. LEVOTHYROXINE [Concomitant]
  3. CITALOPRAM [Concomitant]
     Active Substance: CITALOPRAM HYDROBROMIDE

REACTIONS (8)
  - Headache [None]
  - Sinus pain [None]
  - Taste disorder [None]
  - Dry mouth [None]
  - Myalgia [None]
  - Vision blurred [None]
  - Photophobia [None]
  - Fatigue [None]

NARRATIVE: CASE EVENT DATE: 20230103
